FAERS Safety Report 8179251-9 (Version None)
Quarter: 2012Q1

REPORT INFORMATION
  Report Type: 
  Country: None (occurrence: None)
  Receive Date: 20120229
  Receipt Date: 20120229
  Transmission Date: 20120608
  Serious: No
  Sender: FDA-Public Use
  Company Number: None

PATIENT
  Age: 46 Year
  Sex: Female
  Weight: 89.8122 kg

DRUGS (1)
  1. CREST W/ FLUORIDE [Suspect]
     Dates: start: 20111102, end: 20120107

REACTIONS (2)
  - AGEUSIA [None]
  - TONGUE DISORDER [None]
